FAERS Safety Report 19777743 (Version 3)
Quarter: 2021Q3

REPORT INFORMATION
  Report Type: Report from Study
  Country: FR (occurrence: FR)
  Receive Date: 20210902
  Receipt Date: 20210913
  Transmission Date: 20211014
  Serious: Yes (Hospitalization)
  Sender: FDA-Public Use
  Company Number: FR-ROCHE-2898662

PATIENT
  Age: 84 Year
  Sex: Male

DRUGS (10)
  1. ATEZOLIZUMAB. [Suspect]
     Active Substance: ATEZOLIZUMAB
     Indication: NON-SMALL CELL LUNG CANCER
     Dosage: ON 18/AUG/2021, HE RECEIVED MOST RECENT DOSE OF ATEZOLIZUMAB PRIOR TO THE EVENT.
     Route: 041
     Dates: start: 20210818
  2. TAHOR [Concomitant]
     Active Substance: ATORVASTATIN CALCIUM
  3. ISOPHANE INSULIN [Concomitant]
     Active Substance: INSULIN NOS
     Dosage: 17 UNITS MORNING AND EVENING
  4. NOVORAPID [Concomitant]
     Active Substance: INSULIN ASPART
     Dosage: 5 UNITS BEFORE MEALTIMES
  5. KARDEGIC [Concomitant]
     Active Substance: ASPIRIN DL-LYSINE
  6. LERCAN [Concomitant]
     Active Substance: LERCANIDIPINE
     Dosage: 1/2 TABLET IN THE MORNING
  7. CARBOPLATIN. [Suspect]
     Active Substance: CARBOPLATIN
     Indication: NON-SMALL CELL LUNG CANCER
     Dosage: ON 18/AUG/2021, HE RECEIVED MOST RECENT DOSE OF CARBOPLATIN PRIOR TO THE EVENT
     Route: 065
     Dates: start: 20210818
  8. LASILIX [Concomitant]
     Active Substance: FUROSEMIDE
  9. PACLITAXEL. [Suspect]
     Active Substance: PACLITAXEL
     Indication: NON-SMALL CELL LUNG CANCER
     Dosage: ON 18/AUG/2021, HE RECEIVED MOST RECENT DOSE OF PACLITAXEL PRIOR TO THE EVENT
     Route: 065
     Dates: start: 20210818
  10. APROVEL [Concomitant]
     Active Substance: IRBESARTAN

REACTIONS (1)
  - Coronary artery disease [Recovered/Resolved]

NARRATIVE: CASE EVENT DATE: 20210823
